FAERS Safety Report 9000114 (Version 3)
Quarter: 2013Q1

REPORT INFORMATION
  Report Type: Spontaneous
  Country: CA (occurrence: CA)
  Receive Date: 20130102
  Receipt Date: 20130118
  Transmission Date: 20140127
  Serious: Yes (Other)
  Sender: FDA-Public Use
  Company Number: CA-BAYER-2012-134643

PATIENT
  Age: 38 Year
  Sex: Female

DRUGS (2)
  1. CIPRO [Suspect]
     Indication: CYSTITIS
     Dosage: UNK
     Dates: start: 200810
  2. CIPRO [Suspect]
     Indication: CYSTITIS
     Dosage: UNK
     Route: 048
     Dates: start: 2005

REACTIONS (5)
  - Tendon injury [None]
  - Tendonitis [None]
  - Tendonitis [None]
  - Tendon rupture [None]
  - Wrist surgery [None]
